FAERS Safety Report 5413951-6 (Version None)
Quarter: 2007Q3

REPORT INFORMATION
  Report Type: 
  Country: None (occurrence: None)
  Receive Date: 20070814
  Receipt Date: 20070810
  Transmission Date: 20080115
  Serious: No
  Sender: FDA-Public Use
  Company Number: US-BOEHRINGER INGELHEIM PHARMACEUTICALS, INC.-2007-BP-11555BP

PATIENT
  Age: 81 Year
  Sex: Male

DRUGS (6)
  1. FLOMAX [Suspect]
     Indication: URINE FLOW DECREASED
     Route: 048
     Dates: start: 20070501, end: 20070617
  2. ATENOLOL [Concomitant]
     Indication: HYPERTENSION
  3. IMDUR [Concomitant]
     Indication: CARDIAC DISORDER
  4. INDAPAMIDE [Concomitant]
     Indication: HYPERTENSION
  5. ALLOPURINOL [Concomitant]
     Indication: BLOOD URIC ACID ABNORMAL
  6. ZOCOR [Concomitant]
     Indication: HYPERCHOLESTEROLAEMIA

REACTIONS (1)
  - BACK PAIN [None]
